FAERS Safety Report 5454152-5 (Version None)
Quarter: 2007Q3

REPORT INFORMATION
  Report Type: 
  Country: None (occurrence: None)
  Receive Date: 20070917
  Receipt Date: 20070228
  Transmission Date: 20080115
  Serious: Yes (Other)
  Sender: FDA-Public Use
  Company Number: US-ASTRAZENECA-2006UW11049

PATIENT
  Age: 45 Year
  Sex: Female
  Weight: 102.3 kg

DRUGS (1)
  1. SEROQUEL [Suspect]
     Indication: HEADACHE
     Route: 048
     Dates: start: 20050101

REACTIONS (1)
  - DIABETIC COMA [None]
